FAERS Safety Report 25520224 (Version 1)
Quarter: 2025Q3

REPORT INFORMATION
  Report Type: Spontaneous
  Country: ZA (occurrence: ZA)
  Receive Date: 20250704
  Receipt Date: 20250704
  Transmission Date: 20251020
  Serious: Yes (Hospitalization, Other)
  Sender: BRISTOL-MYERS SQUIBB COMPANY
  Company Number: ZA-BRISTOL-MYERS SQUIBB COMPANY-2025-093903

PATIENT
  Age: 60 Year
  Sex: Female

DRUGS (1)
  1. ELIQUIS [Suspect]
     Active Substance: APIXABAN
     Indication: Prophylaxis
     Dosage: 2.5 MG,2X/DAY

REACTIONS (3)
  - Diabetes mellitus inadequate control [Unknown]
  - Deep vein thrombosis [Unknown]
  - Pulmonary embolism [Unknown]
